FAERS Safety Report 9310400 (Version 2)
Quarter: 2013Q2

REPORT INFORMATION
  Report Type: Spontaneous
  Country: US (occurrence: US)
  Receive Date: 20130527
  Receipt Date: 20130528
  Transmission Date: 20140414
  Serious: No
  Sender: FDA-Public Use
  Company Number: US-PFIZER INC-2013159954

PATIENT
  Sex: Male

DRUGS (1)
  1. INLYTA [Suspect]
     Indication: NEOPLASM MALIGNANT
     Dosage: 7 MG, 1X/DAY (ONE 5 MG TAB WITH 2 1 MG TABS)

REACTIONS (2)
  - Disease progression [Unknown]
  - Neoplasm malignant [Unknown]
